FAERS Safety Report 8294586-7 (Version None)
Quarter: 2012Q2

REPORT INFORMATION
  Report Type: 
  Country: None (occurrence: None)
  Receive Date: 20120418
  Receipt Date: 20120410
  Transmission Date: 20120825
  Serious: Yes (Life-Threatening, Hospitalization)
  Sender: FDA-Public Use
  Company Number: US-ACTELION-A-NJ2012-63239

PATIENT

DRUGS (3)
  1. LASIX [Concomitant]
  2. TRACLEER [Suspect]
     Indication: PULMONARY ARTERIAL HYPERTENSION
     Dosage: 125 MG, BID
     Route: 048
     Dates: start: 20080513
  3. COUMADIN [Concomitant]

REACTIONS (5)
  - HIP FRACTURE [None]
  - FALL [None]
  - BREAST CANCER RECURRENT [None]
  - PULMONARY EMBOLISM [None]
  - METASTASES TO BONE [None]
